FAERS Safety Report 5130237-8 (Version None)
Quarter: 2006Q4

REPORT INFORMATION
  Report Type: 
  Country: None (occurrence: None)
  Receive Date: 20061019
  Receipt Date: 20061010
  Transmission Date: 20070319
  Serious: Yes (Hospitalization)
  Sender: FDA-Public Use
  Company Number: FR-JNJFOC-20061002528

PATIENT
  Age: 84 Year
  Sex: Male

DRUGS (10)
  1. RISPERDAL [Suspect]
     Indication: DRUG USE FOR UNKNOWN INDICATION
     Route: 048
  2. PARKINANE [Suspect]
     Indication: DRUG USE FOR UNKNOWN INDICATION
     Route: 048
  3. SERESTA [Suspect]
     Indication: DRUG USE FOR UNKNOWN INDICATION
     Route: 048
  4. LOXAPAC [Suspect]
     Indication: DRUG USE FOR UNKNOWN INDICATION
     Route: 048
  5. EQUANIL [Concomitant]
     Route: 065
  6. EQUANIL [Concomitant]
     Route: 065
  7. EXELON [Concomitant]
     Route: 065
  8. EXELON [Concomitant]
     Route: 065
  9. IMOVANE [Concomitant]
     Route: 065
  10. IMOVANE [Concomitant]
     Route: 065

REACTIONS (14)
  - ABNORMAL BEHAVIOUR [None]
  - AGGRESSION [None]
  - ANAEMIA [None]
  - DEHYDRATION [None]
  - DISORIENTATION [None]
  - ECCHYMOSIS [None]
  - FALL [None]
  - INFECTION [None]
  - LUNG DISORDER [None]
  - OEDEMA PERIPHERAL [None]
  - PITTING OEDEMA [None]
  - RASH ERYTHEMATOUS [None]
  - RASH PAPULAR [None]
  - SOMNOLENCE [None]
